FAERS Safety Report 14794120 (Version 1)
Quarter: 2018Q2

REPORT INFORMATION
  Report Type: Spontaneous
  Country: US (occurrence: US)
  Receive Date: 20180423
  Receipt Date: 20180423
  Transmission Date: 20180711
  Serious: Yes (Hospitalization)
  Sender: FDA-Public Use
  Company Number: US-PFIZER INC-2018057815

PATIENT
  Sex: Female

DRUGS (1)
  1. IBRANCE [Suspect]
     Active Substance: PALBOCICLIB
     Indication: BREAST CANCER FEMALE
     Dosage: 100 MG, UNK

REACTIONS (4)
  - Stomatitis [Recovering/Resolving]
  - Dizziness [Unknown]
  - Decreased immune responsiveness [Unknown]
  - Nausea [Unknown]

NARRATIVE: CASE EVENT DATE: 20171117
